FAERS Safety Report 18014241 (Version 1)
Quarter: 2020Q3

REPORT INFORMATION
  Report Type: Spontaneous
  Country: CH (occurrence: CH)
  Receive Date: 20200713
  Receipt Date: 20200713
  Transmission Date: 20201103
  Serious: Yes (Hospitalization, Other)
  Sender: FDA-Public Use
  Company Number: CH-JNJFOC-20200641584

PATIENT
  Sex: Male

DRUGS (10)
  1. ORFIRIL [Suspect]
     Active Substance: VALPROATE SODIUM
     Indication: PRODUCT USED FOR UNKNOWN INDICATION
     Route: 048
     Dates: start: 2020, end: 2020
  2. REMERON [Concomitant]
     Active Substance: MIRTAZAPINE
     Route: 048
  3. AKINETON [Concomitant]
     Active Substance: BIPERIDEN HYDROCHLORIDE
     Dosage: AS NECESSARY
     Route: 048
  4. HALDOL [Suspect]
     Active Substance: HALOPERIDOL
     Indication: PRODUCT USED FOR UNKNOWN INDICATION
     Route: 048
     Dates: start: 2020, end: 2020
  5. ZYPREXA [Suspect]
     Active Substance: OLANZAPINE
     Indication: PRODUCT USED FOR UNKNOWN INDICATION
     Route: 048
     Dates: start: 2020, end: 2020
  6. PSYCHOPAX [Concomitant]
     Active Substance: DIAZEPAM
     Dosage: AS NECESSARY
     Route: 048
  7. DAFALGAN [Concomitant]
     Active Substance: ACETAMINOPHEN
     Dosage: AS NECESSARY
     Route: 048
  8. LISITRIL [Concomitant]
     Active Substance: LISINOPRIL
     Route: 048
  9. SOLIAN [Suspect]
     Active Substance: AMISULPRIDE
     Indication: PRODUCT USED FOR UNKNOWN INDICATION
     Dosage: 200 MG 0?1?0?2
     Route: 048
     Dates: start: 2020
  10. STILNOX [Concomitant]
     Active Substance: ZOLPIDEM TARTRATE
     Route: 048

REACTIONS (2)
  - Extrapyramidal disorder [Unknown]
  - Sleep disorder [Unknown]

NARRATIVE: CASE EVENT DATE: 2020
